FAERS Safety Report 8023074-8 (Version None)
Quarter: 2012Q1

REPORT INFORMATION
  Report Type: 
  Country: None (occurrence: None)
  Receive Date: 20120104
  Receipt Date: 20111228
  Transmission Date: 20120608
  Serious: Yes (Life-Threatening)
  Sender: FDA-Public Use
  Company Number: CN-CTI_01428_2011

PATIENT
  Sex: Female

DRUGS (7)
  1. MEZLOCILLIN (MEZLOCILLIN) [Concomitant]
     Indication: NEONATAL INFECTION
     Route: 042
     Dates: start: 20111103, end: 20111108
  2. ETAMSILATE (ETAMSILATE) [Concomitant]
     Indication: HAEMORRHAGE
     Route: 042
     Dates: start: 20111103, end: 20111116
  3. CEFOTIAM (CEFOTIAM) [Concomitant]
     Indication: INFECTION
     Dosage: DAILY DOSE UNKNOWN
     Route: 042
     Dates: start: 20111107, end: 20111109
  4. OXYGEN (OXYGEN) [Concomitant]
     Dosage: DAILY DOSE UNKNOWN
     Dates: end: 20111114
  5. AMBROXOL (AMBROXOL) [Concomitant]
     Indication: OBSTRUCTIVE AIRWAYS DISORDER
     Route: 042
     Dates: start: 20111103, end: 20111108
  6. CUROSURF [Suspect]
     Indication: NEONATAL RESPIRATORY DISTRESS SYNDROME PROPHYLAXIS
     Dosage: DAILY DOSE 120 MILLIGRAMS;UNKNOWN
     Route: 039
     Dates: start: 20111107, end: 20111107
  7. CUROSURF [Suspect]
     Indication: OXYGEN SATURATION ABNORMAL
     Dosage: DAILY DOSE 120 MILLIGRAMS;UNKNOWN
     Route: 039
     Dates: start: 20111107, end: 20111107

REACTIONS (4)
  - OXYGEN SATURATION DECREASED [None]
  - DYSPNOEA [None]
  - SHOCK [None]
  - PALLOR [None]
